FAERS Safety Report 4830518-9 (Version None)
Quarter: 2005Q4

REPORT INFORMATION
  Report Type: 
  Country: None (occurrence: None)
  Receive Date: 20051117
  Receipt Date: 20051011
  Transmission Date: 20060501
  Serious: Yes (Death, Other)
  Sender: FDA-Public Use
  Company Number: IL-NOVOPROD-247687

PATIENT
  Age: 9 Day
  Sex: Male
  Weight: 4 kg

DRUGS (4)
  1. NOVOSEVEN [Suspect]
     Indication: POST PROCEDURAL HAEMORRHAGE
     Dosage: 400 MCG X 3
     Dates: start: 20051003, end: 20051003
  2. APROTININ [Suspect]
     Dosage: 50000 IU, UNK
     Route: 042
     Dates: start: 20051002, end: 20051003
  3. RANITIDINE [Concomitant]
  4. VANCOMYCIN [Concomitant]

REACTIONS (3)
  - ATRIAL THROMBOSIS [None]
  - PULMONARY ARTERY THROMBOSIS [None]
  - PULMONARY HAEMORRHAGE [None]
